FAERS Safety Report 21269692 (Version 1)
Quarter: 2022Q3

REPORT INFORMATION
  Report Type: Spontaneous
  Country: CA (occurrence: CA)
  Receive Date: 20220830
  Receipt Date: 20220830
  Transmission Date: 20221026
  Serious: Yes (Death, Hospitalization)
  Sender: FDA-Public Use
  Company Number: None

PATIENT
  Age: 78 Year
  Sex: Female

DRUGS (3)
  1. TEMOZOLOMIDE [Suspect]
     Active Substance: TEMOZOLOMIDE
     Indication: Glioblastoma
  2. DEXAMETHASONE [Concomitant]
     Active Substance: DEXAMETHASONE
     Route: 065
  3. SEPTRA [Concomitant]
     Active Substance: SULFAMETHOXAZOLE\TRIMETHOPRIM
     Dosage: SOLUTION IV

REACTIONS (6)
  - Aplastic anaemia [Fatal]
  - Drug ineffective [Fatal]
  - Eastern Cooperative Oncology Group performance status worsened [Fatal]
  - Neutropenia [Fatal]
  - Platelet transfusion [Fatal]
  - Thrombocytopenia [Fatal]
